FAERS Safety Report 9833367 (Version 1)
Quarter: 2014Q1

REPORT INFORMATION
  Report Type: Spontaneous
  Country: US (occurrence: US)
  Receive Date: 20140121
  Receipt Date: 20140121
  Transmission Date: 20141002
  Serious: No
  Sender: FDA-Public Use
  Company Number: US-TEVA-453448USA

PATIENT
  Sex: Female

DRUGS (1)
  1. TRIAMCINOLONE [Suspect]

REACTIONS (2)
  - Nasal congestion [Unknown]
  - Drug ineffective [Unknown]
